FAERS Safety Report 4418285-4 (Version None)
Quarter: 2004Q3

REPORT INFORMATION
  Report Type: 
  Country: None (occurrence: None)
  Receive Date: 20040809
  Receipt Date: 20040129
  Transmission Date: 20050211
  Serious: No
  Sender: FDA-Public Use
  Company Number: US-GLAXOSMITHKLINE-A0495772A

PATIENT
  Age: 67 Year
  Sex: Female

DRUGS (10)
  1. PAXIL CR [Suspect]
     Dosage: 12.5MG PER DAY
     Route: 048
     Dates: start: 20040121
  2. KLONOPIN [Concomitant]
  3. TIAZAC [Concomitant]
  4. ACCUPRIL [Concomitant]
  5. ATENOLOL [Concomitant]
  6. MULTIVITAMIN [Concomitant]
  7. ASPIRIN [Concomitant]
  8. CALCIUM [Concomitant]
  9. B COMPLEX VITAMINS [Concomitant]
  10. VITAMIN C [Concomitant]

REACTIONS (8)
  - AGITATION [None]
  - CONSTIPATION [None]
  - DIZZINESS [None]
  - HYPERHIDROSIS [None]
  - NAUSEA [None]
  - PALPITATIONS [None]
  - POLLAKIURIA [None]
  - SYNCOPE [None]
